FAERS Safety Report 6574130-2 (Version None)
Quarter: 2010Q1

REPORT INFORMATION
  Report Type: 
  Country: None (occurrence: None)
  Receive Date: 20100115
  Receipt Date: 20100104
  Transmission Date: 20100710
  Serious: Yes (Hospitalization, Other)
  Sender: FDA-Public Use
  Company Number: AECAN200900322

PATIENT
  Age: 77 Year
  Sex: Male
  Weight: 70.37 kg

DRUGS (4)
  1. IGIVNEX [Suspect]
     Indication: CHRONIC INFLAMMATORY DEMYELINATING POLYRADICULONEUROPATHY
     Dosage: 70 GM; TOTAL; IV
     Route: 042
     Dates: start: 20090824, end: 20091102
  2. IGIVNEX [Suspect]
  3. GAMUNEX [Suspect]
     Indication: CHRONIC INFLAMMATORY DEMYELINATING POLYRADICULONEUROPATHY
     Dosage: 70 GM;QD; IV
     Route: 042
     Dates: start: 20090824, end: 20091006
  4. GAMUNEX [Suspect]

REACTIONS (10)
  - ANAEMIA HAEMOLYTIC AUTOIMMUNE [None]
  - BLOOD PRESSURE SYSTOLIC INCREASED [None]
  - CONDITION AGGRAVATED [None]
  - DYSPNOEA [None]
  - DYSPNOEA PAROXYSMAL NOCTURNAL [None]
  - HAEMOGLOBINURIA [None]
  - PLATELET COUNT DECREASED [None]
  - POLYCHROMASIA [None]
  - PUNCTATE BASOPHILIA [None]
  - WHITE BLOOD CELL COUNT DECREASED [None]
